FAERS Safety Report 8573412-2 (Version None)
Quarter: 2012Q2

REPORT INFORMATION
  Report Type: 
  Country: None (occurrence: None)
  Receive Date: 20120423
  Receipt Date: 20110601
  Transmission Date: 20120825
  Serious: Yes (Other)
  Sender: FDA-Public Use
  Company Number: FK201101106

PATIENT
  Age: 66 Year
  Sex: Male
  Weight: 113.5 kg

DRUGS (2)
  1. HEPARIN SODIUM [Suspect]
     Indication: ANTICOAGULANT THERAPY
     Dosage: 5000 USP UNITS, IVP
  2. HEPARIN SODIUM [Suspect]
     Dosage: 1000 USP UNITS, PER HOUR, D/C DURING LAST HOUR, INTRAVENOUS (NOT OTHERWISE SPECIFIED)
     Route: 042

REACTIONS (1)
  - CATHETER SITE HAEMORRHAGE [None]
